FAERS Safety Report 5401875-X (Version None)
Quarter: 2007Q3

REPORT INFORMATION
  Report Type: 
  Country: None (occurrence: None)
  Receive Date: 20070731
  Receipt Date: 20070723
  Transmission Date: 20080115
  Serious: Yes (Hospitalization, Other)
  Sender: FDA-Public Use
  Company Number: US-ELI_LILLY_AND_COMPANY-US200706005117

PATIENT
  Age: 61 Year
  Sex: Female
  Weight: 87.074 kg

DRUGS (14)
  1. BYETTA [Suspect]
     Indication: TYPE 2 DIABETES MELLITUS
     Dosage: 5 UG, 2/D
     Route: 058
     Dates: start: 20061101, end: 20070201
  2. BYETTA [Suspect]
     Dosage: 10 UG, 2/D
     Route: 058
     Dates: start: 20070201, end: 20070523
  3. GLUCOPHAGE [Concomitant]
     Indication: DIABETES MELLITUS
     Dosage: 500 MG, 4/D
     Route: 048
     Dates: end: 20070523
  4. GLUCOPHAGE [Concomitant]
     Dosage: 500 MG, 4/D
     Route: 048
     Dates: start: 20070607
  5. ACTOS [Concomitant]
     Indication: DIABETES MELLITUS
     Dosage: 30 MG, DAILY (1/D)
     Route: 048
     Dates: start: 20060901, end: 20070523
  6. ACTOS [Concomitant]
     Dosage: 30 MG, DAILY (1/D)
     Route: 048
     Dates: start: 20070607
  7. GLIMEPIRIDE [Concomitant]
     Indication: DIABETES MELLITUS
     Dates: start: 20070401, end: 20070523
  8. ASPIRIN [Concomitant]
     Indication: CARDIAC DISORDER
     Dosage: 81 MG, DAILY (1/D)
     Route: 048
     Dates: start: 20060901
  9. PLAVIX [Concomitant]
     Indication: CARDIAC DISORDER
     Dosage: 75 MG, DAILY (1/D)
     Route: 048
     Dates: start: 20060901
  10. BENAZEPRIL HYDROCHLORIDE [Concomitant]
     Indication: CARDIAC DISORDER
     Dosage: 10 MG, DAILY (1/D)
     Route: 048
     Dates: start: 20060901
  11. METOPROLOL SUCCINATE [Concomitant]
     Indication: CARDIAC DISORDER
     Dosage: 75 MG, 2/D
     Route: 048
     Dates: start: 20060901
  12. LIPITOR [Concomitant]
     Indication: CARDIAC DISORDER
     Dosage: 80 MG, DAILY (1/D)
     Route: 048
     Dates: start: 20060901
  13. GLYBURIDE [Concomitant]
     Indication: DIABETES MELLITUS
     Dosage: 10 MG, 2/D
     Route: 048
     Dates: end: 20070401
  14. GLYBURIDE [Concomitant]
     Dosage: 10 MG, 2/D
     Route: 048
     Dates: start: 20070607

REACTIONS (13)
  - ANXIETY [None]
  - BLOOD GLUCOSE DECREASED [None]
  - BLOOD GLUCOSE INCREASED [None]
  - CHOKING SENSATION [None]
  - DYSPNOEA [None]
  - FLUID RETENTION [None]
  - IRON DEFICIENCY [None]
  - MYOCARDIAL INFARCTION [None]
  - NAUSEA [None]
  - PROCEDURAL PAIN [None]
  - STENT-GRAFT MALFUNCTION [None]
  - VOMITING [None]
  - WEIGHT DECREASED [None]
